FAERS Safety Report 5335266-7 (Version None)
Quarter: 2007Q1

REPORT INFORMATION
  Report Type: 
  Country: None (occurrence: None)
  Receive Date: 20070308
  Receipt Date: 20070117
  Transmission Date: 20070707
  Serious: No
  Sender: FDA-Public Use
  Company Number: 2007-BP-00783BP

PATIENT
  Age: 53 Year
  Sex: Female

DRUGS (5)
  1. SPIRIVA [Suspect]
     Indication: CHRONIC OBSTRUCTIVE PULMONARY DISEASE
     Dosage: 18 MCG (18 MCG, 1 IN 1 D), IH
     Route: 055
     Dates: start: 20070114
  2. ADVAIR (SERETIDE) [Concomitant]
  3. CYMBALTA [Concomitant]
  4. ALBUTEROL [Concomitant]
  5. COMBIVENT [Concomitant]

REACTIONS (1)
  - ABNORMAL DREAMS [None]
